FAERS Safety Report 12444927 (Version 2)
Quarter: 2016Q2

REPORT INFORMATION
  Report Type: Spontaneous
  Country: US (occurrence: US)
  Receive Date: 20160607
  Receipt Date: 20160613
  Transmission Date: 20160815
  Serious: Yes (Other)
  Sender: FDA-Public Use
  Company Number: US-PFIZER INC-2016289075

PATIENT
  Age: 52 Year
  Sex: Male
  Weight: 86.18 kg

DRUGS (1)
  1. VIAGRA [Suspect]
     Active Substance: SILDENAFIL CITRATE
     Indication: ERECTILE DYSFUNCTION
     Dosage: 100 MG BREAKS IT IN 3 OR 4 PIECES AND TAKES THEM AT DIFFERENT TIMES, UNK

REACTIONS (1)
  - Jaw fracture [Recovering/Resolving]

NARRATIVE: CASE EVENT DATE: 20160520
